FAERS Safety Report 9462958 (Version 8)
Quarter: 2020Q4

REPORT INFORMATION
  Report Type: Spontaneous
  Country: US (occurrence: US)
  Receive Date: 20130816
  Receipt Date: 20201030
  Transmission Date: 20210114
  Serious: Yes (Hospitalization, Other)
  Sender: FDA-Public Use
  Company Number: US-PFIZER INC-2013235165

PATIENT
  Age: 56 Year
  Sex: Female
  Weight: 65 kg

DRUGS (19)
  1. HYDROCODONE [Concomitant]
     Active Substance: HYDROCODONE
     Indication: FIBROMYALGIA
     Dosage: 10 MG, 1X/DAY [HYDROCODONE 10MG TABLET BY MOUTH EVERY NIGHT]
     Route: 048
  2. LEXAPRO [Concomitant]
     Active Substance: ESCITALOPRAM OXALATE
     Indication: ANXIETY
  3. XANAX [Concomitant]
     Active Substance: ALPRAZOLAM
     Indication: PANIC ATTACK
  4. FUROSEMIDE. [Concomitant]
     Active Substance: FUROSEMIDE
     Indication: POLYURIA
     Dosage: 40 MG, 1X/DAY
     Route: 048
  5. RABEPRAZOLE [Concomitant]
     Active Substance: RABEPRAZOLE
     Indication: GASTROOESOPHAGEAL REFLUX DISEASE
     Dosage: 20 MG, 2X/DAY [20MG PILL BY MOUTH ONCE IN THE MORNING AND ONCE AT NIGHT]
     Route: 048
  6. CYCLOBENZAPRINE. [Concomitant]
     Active Substance: CYCLOBENZAPRINE
     Indication: FIBROMYALGIA
  7. ACIPHEX [Concomitant]
     Active Substance: RABEPRAZOLE SODIUM
     Indication: GASTROOESOPHAGEAL REFLUX DISEASE
     Dosage: 25 MG, 2X/DAY (ONE IN THE MORNING AND ONE AT NIGHT)
     Dates: end: 201604
  8. PREMARIN [Suspect]
     Active Substance: ESTROGENS, CONJUGATED
     Indication: OESTROGEN REPLACEMENT THERAPY
     Dosage: 1.25 MG, ONCE DAILY (AT NIGHT)
     Route: 048
     Dates: start: 1980
  9. PREMARIN [Suspect]
     Active Substance: ESTROGENS, CONJUGATED
     Indication: OESTROGEN DEFICIENCY
     Dosage: 2.25 MG, 1X/DAY [TWO 1.25MG TABLETS BY MOUTH EVERY NIGHT]
     Route: 048
     Dates: start: 1980
  10. PREMARIN [Suspect]
     Active Substance: ESTROGENS, CONJUGATED
     Indication: BLOOD OESTROGEN DECREASED
     Dosage: (1.25/2.5 2 A DAY), 2X/DAY
     Route: 065
     Dates: end: 20151130
  11. DIPHENOXYLATE [Concomitant]
     Active Substance: DIPHENOXYLATE
     Indication: DIARRHOEA
     Dosage: 2.5 MG, 2X/DAY [2.5MG PILL BY MOUTH ONE IN THE MORNING AND ONCE AT NIGHT]
     Route: 048
     Dates: start: 2017
  12. PREMARIN [Suspect]
     Active Substance: ESTROGENS, CONJUGATED
     Indication: LOSS OF PERSONAL INDEPENDENCE IN DAILY ACTIVITIES
     Dosage: 2.5 MG, (BY TAKING 2 TABLETS OF 1.25 MG) ONCE A DAY (AT NIGHT)
     Route: 048
     Dates: end: 201303
  13. HYDROCODONE [Concomitant]
     Active Substance: HYDROCODONE
     Indication: NEUROPATHY PERIPHERAL
  14. HYDROCODONE [Concomitant]
     Active Substance: HYDROCODONE
     Indication: MIGRAINE
  15. CYCLOBENZAPRINE. [Concomitant]
     Active Substance: CYCLOBENZAPRINE
     Indication: NEUROPATHY PERIPHERAL
     Dosage: 30 MG, UNK [10MG TABLET BY MOUTH IN THE MORNING AND NIGHT/THIRD DOSE IN THE AFTERNOON IF NEEDED]
     Route: 048
  16. HYDROCODONE [Concomitant]
     Active Substance: HYDROCODONE
     Indication: PAIN
     Dosage: UNK
     Dates: start: 2005, end: 2015
  17. LEXAPRO [Concomitant]
     Active Substance: ESCITALOPRAM OXALATE
     Indication: DEPRESSION
     Dosage: 25 MG, 1X/DAY (IN THE MORNING)
     Dates: start: 2011, end: 2015
  18. XANAX [Concomitant]
     Active Substance: ALPRAZOLAM
     Indication: ANXIETY
     Dosage: UNK
     Dates: start: 2005, end: 2015
  19. NORTRIPTYLINE [Concomitant]
     Active Substance: NORTRIPTYLINE
     Indication: SLEEP DISORDER
     Dosage: 50 MG, 1X/DAY [50MG CAPSULE BY MOUTH AT NIGHT]
     Route: 048

REACTIONS (13)
  - Vein disorder [Not Recovered/Not Resolved]
  - Vaginal discharge [Not Recovered/Not Resolved]
  - Irritability [Unknown]
  - Migraine [Not Recovered/Not Resolved]
  - Neuropathy peripheral [Not Recovered/Not Resolved]
  - Weight increased [Not Recovered/Not Resolved]
  - Drug ineffective [Not Recovered/Not Resolved]
  - Gait disturbance [Not Recovered/Not Resolved]
  - Feeding disorder [Not Recovered/Not Resolved]
  - Diabetes mellitus [Not Recovered/Not Resolved]
  - Blister [Unknown]
  - Condition aggravated [Not Recovered/Not Resolved]
  - Anxiety [Not Recovered/Not Resolved]

NARRATIVE: CASE EVENT DATE: 2005
